FAERS Safety Report 4833023-9 (Version None)
Quarter: 2005Q4

REPORT INFORMATION
  Report Type: 
  Country: None (occurrence: None)
  Receive Date: 20051121
  Receipt Date: 20051110
  Transmission Date: 20060501
  Serious: Yes (Hospitalization, Other)
  Sender: FDA-Public Use
  Company Number: AU-BRISTOL-MYERS SQUIBB COMPANY-13175393

PATIENT
  Age: 82 Year
  Sex: Female

DRUGS (1)
  1. AVAPRO-HCT TABS 150 MG/12.5 MG [Suspect]
     Indication: HYPERTENSION
     Route: 048
     Dates: start: 20051027

REACTIONS (3)
  - ATRIOVENTRICULAR BLOCK [None]
  - BLOOD CHLORIDE DECREASED [None]
  - BLOOD SODIUM DECREASED [None]
